FAERS Safety Report 19158388 (Version 1)
Quarter: 2021Q2

REPORT INFORMATION
  Report Type: Spontaneous
  Country: GB (occurrence: GB)
  Receive Date: 20210420
  Receipt Date: 20210420
  Transmission Date: 20210717
  Serious: Yes (Disabling)
  Sender: FDA-Public Use
  Company Number: GB-MYLANLABS-2021M1023106

PATIENT
  Sex: Male
  Weight: 78 kg

DRUGS (12)
  1. CYANOCOBALAMIN. [Concomitant]
     Active Substance: CYANOCOBALAMIN
     Dosage: OEN DAILY FOR 3 MONTHS  R/V EARLY MAY 2021
     Dates: start: 20210211
  2. RAMIPRIL. [Concomitant]
     Active Substance: RAMIPRIL
     Dosage: TAKE ONE DAILY
     Dates: start: 20201217, end: 20210311
  3. SIMVASTATIN. [Concomitant]
     Active Substance: SIMVASTATIN
     Dosage: 1 DOSAGE FORM, PM ONE AT NIGHT
     Dates: start: 20201217
  4. NITROFURANTOIN. [Concomitant]
     Active Substance: NITROFURANTOIN
     Dosage: TAKE ONE TWICE DAILY
     Dates: start: 20210302, end: 20210309
  5. IPINNIA XL [Concomitant]
     Dosage: TAKE ONE TABLET ONCE DAILY
     Dates: start: 20201217
  6. STEXEROL D3 [Concomitant]
     Dosage: 2 DOSAGE FORM, QD TAKE TWO DAILY(INSTEAD OF THE DESUNIN)
     Dates: start: 20201217
  7. CO?BENELDOPA [Concomitant]
     Active Substance: BENSERAZIDE HYDROCHLORIDE\LEVODOPA
     Dosage: 1 TABLET FOUR TIMES A DAY, 30 MINS BEFORE MEALS
     Dates: start: 20201217
  8. COLCHICINE. [Concomitant]
     Active Substance: COLCHICINE
     Dosage: 2 TABS INITALLY AND THEN ONE EVERY 4 HOURS UNTI...
     Dates: start: 20200130
  9. DORZOLAMIDE HYDROCHLORIDE. [Concomitant]
     Active Substance: DORZOLAMIDE HYDROCHLORIDE
     Dosage: 2 DOSAGE FORM, BID APPLY TWICE A DAY RIGHT EYE
     Dates: start: 20201216
  10. PRED FORTE [Concomitant]
     Active Substance: PREDNISOLONE ACETATE
     Dosage: AS DIRECTED BY HOSPITAL. DO NOT TAKE FOR ANY LO...
     Dates: start: 20200130
  11. RAMIPRIL. [Suspect]
     Active Substance: RAMIPRIL
     Indication: PRODUCT USED FOR UNKNOWN INDICATION
     Dosage: 2.5MG PLUS 5MG PLUS  10MG
     Dates: start: 20210406
  12. TIMOLOL. [Concomitant]
     Active Substance: TIMOLOL
     Dosage: 1 DOSAGE FORM, BID INSTILL ONE DROP TWICE DAILY
     Dates: start: 20201216

REACTIONS (2)
  - Mental impairment [Recovered/Resolved]
  - Abnormal behaviour [Recovered/Resolved]

NARRATIVE: CASE EVENT DATE: 20210406
